FAERS Safety Report 8192354-8 (Version None)
Quarter: 2012Q1

REPORT INFORMATION
  Report Type: 
  Country: None (occurrence: None)
  Receive Date: 20120308
  Receipt Date: 20120227
  Transmission Date: 20120608
  Serious: Yes (Hospitalization)
  Sender: FDA-Public Use
  Company Number: US-AMGEN-USASP2012013930

PATIENT
  Sex: Female

DRUGS (1)
  1. ENBREL [Suspect]
     Dosage: UNK
     Route: 064

REACTIONS (3)
  - PREMATURE BABY [None]
  - RESPIRATORY DISORDER NEONATAL [None]
  - FEEDING DISORDER NEONATAL [None]
